FAERS Safety Report 6285418-7 (Version None)
Quarter: 2009Q3

REPORT INFORMATION
  Report Type: 
  Country: None (occurrence: None)
  Receive Date: 20090723
  Receipt Date: 20090715
  Transmission Date: 20100115
  Serious: Yes (Hospitalization, Other)
  Sender: FDA-Public Use
  Company Number: 2009SP008137

PATIENT
  Age: 33 Year
  Sex: Male
  Weight: 60 kg

DRUGS (6)
  1. TEMODAL [Suspect]
     Indication: EPENDYMOMA MALIGNANT
     Dosage: 75 MG/M2;QD;PO ; 240 MG;PO
     Route: 048
     Dates: start: 20090305, end: 20090322
  2. TEMODAL [Suspect]
     Indication: EPENDYMOMA MALIGNANT
     Dosage: 75 MG/M2;QD;PO ; 240 MG;PO
     Route: 048
     Dates: start: 20090608
  3. ZOFRAN ZYDIS [Concomitant]
  4. SELENICA-R [Concomitant]
  5. BAKTAR [Concomitant]
  6. MAGNESIUM OXIDE [Concomitant]

REACTIONS (7)
  - ATELECTASIS [None]
  - BLOOD PRESSURE DECREASED [None]
  - LYMPHOCYTE COUNT DECREASED [None]
  - PLEURAL EFFUSION [None]
  - PNEUMONIA [None]
  - PNEUMONIA CHLAMYDIAL [None]
  - URINE OUTPUT DECREASED [None]
